FAERS Safety Report 10016738 (Version 1)
Quarter: 2014Q1

REPORT INFORMATION
  Report Type: Report from Study
  Country: AT (occurrence: AT)
  Receive Date: 20140318
  Receipt Date: 20140318
  Transmission Date: 20141002
  Serious: Yes (Other)
  Sender: FDA-Public Use
  Company Number: PHHY2014AT030842

PATIENT
  Age: 63 Year
  Sex: Female
  Weight: 78 kg

DRUGS (21)
  1. MYCOPHENOLIC ACID [Suspect]
     Dosage: 360 MG
     Dates: start: 20120509
  2. MYCOPHENOLIC ACID [Suspect]
     Dosage: 1440 MG, UNK
  3. MYCOPHENOLIC ACID [Suspect]
     Dosage: 720 MG, UNK
  4. MYCOPHENOLIC ACID [Suspect]
     Dosage: 1080 MG, UNK
  5. BASILIXIMAB [Concomitant]
     Indication: IMMUNOSUPPRESSION
     Dosage: 20 MG, UNK
  6. TACROLIMUS [Concomitant]
     Indication: IMMUNOSUPPRESSION
     Dosage: 9 MG, UNK
  7. TACROLIMUS [Concomitant]
     Dosage: 10 MG, UNK
  8. TACROLIMUS [Concomitant]
     Dosage: 8 MG, UNK
  9. TACROLIMUS [Concomitant]
     Dosage: 6 MG, UNK
  10. TACROLIMUS [Concomitant]
     Dosage: 4 MG, UNK
  11. APREDNISLON [Concomitant]
     Indication: IMMUNOSUPPRESSION
     Dosage: 50 MG, UNK
  12. APREDNISLON [Concomitant]
     Dosage: 10 MG, UNK
  13. APREDNISLON [Concomitant]
     Dosage: 5 MG, UNK
  14. APREDNISLON [Concomitant]
     Dosage: UNK
  15. NEXUM [Concomitant]
     Dosage: 40 MG, QD
  16. AMLODIPINE [Concomitant]
     Dosage: 10 MG, QD
  17. ITERIUM [Concomitant]
     Indication: HYPERTENSION
     Dosage: 1 MG, BID
  18. FRAGMIN [Concomitant]
     Indication: THROMBOSIS PROPHYLAXIS
     Route: 058
  19. LOSARTAN [Concomitant]
     Indication: HYPERTENSION
     Dosage: 100 MG, UNK
  20. TRITTICO [Concomitant]
  21. EXFORGE [Concomitant]
     Indication: HYPERTENSION

REACTIONS (6)
  - Depression [Unknown]
  - Blood glucose increased [Unknown]
  - Hyperuricaemia [Unknown]
  - Blood cholesterol [Unknown]
  - Blood triglycerides [Unknown]
  - Cytomegalovirus viraemia [Unknown]
